FAERS Safety Report 9132494 (Version 5)
Quarter: 2013Q3

REPORT INFORMATION
  Report Type: Spontaneous
  Country: GB (occurrence: GB)
  Receive Date: 20130301
  Receipt Date: 20130712
  Transmission Date: 20140515
  Serious: Yes (Other)
  Sender: FDA-Public Use
  Company Number: GB-GLAXOSMITHKLINE-B0869179A

PATIENT
  Sex: Male

DRUGS (3)
  1. ZOVIRAX [Suspect]
     Indication: OPHTHALMIC HERPES SIMPLEX
     Dosage: 1APP FIVE TIMES PER DAY
     Route: 047
     Dates: start: 2013, end: 2013
  2. ATENOLOL [Concomitant]
     Indication: HYPERTENSION
  3. AMLODIPINE [Concomitant]
     Indication: HYPERTENSION

REACTIONS (5)
  - Blindness transient [Recovered/Resolved]
  - Eye irritation [Recovered/Resolved]
  - Impaired healing [Recovered/Resolved]
  - Pain [Recovered/Resolved]
  - Product quality issue [Unknown]
